FAERS Safety Report 24696776 (Version 2)
Quarter: 2025Q2

REPORT INFORMATION
  Report Type: Spontaneous
  Country: US (occurrence: US)
  Receive Date: 20241204
  Receipt Date: 20250410
  Transmission Date: 20250717
  Serious: Yes (Hospitalization, Other)
  Sender: SANOFI AVENTIS
  Company Number: US-SA-2024SA357552

PATIENT
  Age: 79 Year
  Sex: Male
  Weight: 143.64 kg

DRUGS (16)
  1. DUPIXENT [Suspect]
     Active Substance: DUPILUMAB
     Indication: Asthma
     Dosage: 300 MG, QOW
     Route: 058
  2. XARELTO [Concomitant]
     Active Substance: RIVAROXABAN
  3. LEVOTHYROXINE SODIUM [Concomitant]
     Active Substance: LEVOTHYROXINE SODIUM
  4. ALBUTEROL\IPRATROPIUM [Concomitant]
     Active Substance: ALBUTEROL\IPRATROPIUM
  5. BUMETANIDE [Concomitant]
     Active Substance: BUMETANIDE
  6. PROPRANOLOL [Concomitant]
     Active Substance: PROPRANOLOL HYDROCHLORIDE
  7. AMIODARONE [Concomitant]
     Active Substance: AMIODARONE
  8. MONTELUKAST SODIUM [Concomitant]
     Active Substance: MONTELUKAST SODIUM
  9. TESTOSTERONE CYPIONATE [Concomitant]
     Active Substance: TESTOSTERONE CYPIONATE
  10. ALLOPURINOL [Concomitant]
     Active Substance: ALLOPURINOL
  11. POTASSIUM CHLORIDE [Concomitant]
     Active Substance: POTASSIUM CHLORIDE
  12. FINASTERIDE [Concomitant]
     Active Substance: FINASTERIDE
  13. ATORVASTATIN CALCIUM [Concomitant]
     Active Substance: ATORVASTATIN CALCIUM
  14. FAMOTIDINE [Concomitant]
     Active Substance: FAMOTIDINE
  15. FOLIC ACID [Concomitant]
     Active Substance: FOLIC ACID
  16. CYANOCOBALAMIN [Concomitant]
     Active Substance: CYANOCOBALAMIN

REACTIONS (5)
  - Pneumonia [Recovering/Resolving]
  - Clostridium difficile infection [Recovering/Resolving]
  - Hospitalisation [Unknown]
  - Salivary hypersecretion [Recovering/Resolving]
  - Nasopharyngitis [Recovering/Resolving]

NARRATIVE: CASE EVENT DATE: 20240901
